FAERS Safety Report 12056638 (Version 26)
Quarter: 2019Q2

REPORT INFORMATION
  Report Type: Report from Study
  Country: US (occurrence: US)
  Receive Date: 20160209
  Receipt Date: 20190520
  Transmission Date: 20190711
  Serious: Yes (Death, Hospitalization, Other)
  Sender: FDA-Public Use
  Company Number: US-ACTELION-A-US2015-128038

PATIENT
  Age: 68 Year
  Sex: Male
  Weight: 63.49 kg

DRUGS (57)
  1. SILDENAFIL. [Concomitant]
     Active Substance: SILDENAFIL
     Indication: PULMONARY ARTERIAL HYPERTENSION
     Dosage: 10 MG, TID
     Route: 048
  2. DOXEPIN [Concomitant]
     Active Substance: DOXEPIN
     Dosage: 10 MG, QD
     Route: 048
  3. BUMETANIDE. [Concomitant]
     Active Substance: BUMETANIDE
  4. HYDROCORTISONE. [Concomitant]
     Active Substance: HYDROCORTISONE
     Dosage: 100 MG, Q12HRS
     Route: 042
  5. AMIODARONE [Concomitant]
     Active Substance: AMIODARONE
     Dosage: 300 MG, PRN
     Route: 042
  6. SIMETHICONE (DIMETHICONE) [Concomitant]
     Active Substance: DIMETHICONE
     Dosage: 1.2 ML, PRN
     Route: 048
  7. VELETRI [Suspect]
     Active Substance: EPOPROSTENOL
     Dosage: 30.4 NG/KG, PER MIN
     Route: 042
  8. VELETRI [Suspect]
     Active Substance: EPOPROSTENOL
     Dosage: 30 NG/KG, PER MIN
     Route: 042
     Dates: end: 20190405
  9. ASA [Concomitant]
     Active Substance: ASPIRIN
     Dosage: 81 MG, QD
     Route: 048
  10. ATORVASTATIN [Concomitant]
     Active Substance: ATORVASTATIN
     Dosage: 20 MG, QD
     Route: 048
  11. ATORVASTATIN [Concomitant]
     Active Substance: ATORVASTATIN
     Dosage: 10 MG, BEDTIME
     Route: 048
  12. BUMEX [Concomitant]
     Active Substance: BUMETANIDE
     Dosage: 0.5-2.5 MG, PRN
     Route: 048
  13. IRON [Concomitant]
     Active Substance: IRON
     Dosage: 325 MG, TID
     Route: 048
  14. CHLORHEXIDINE [Concomitant]
     Active Substance: CHLORHEXIDINE
     Dosage: 15 ML, Q12HRS
     Route: 048
  15. ATROPINE. [Concomitant]
     Active Substance: ATROPINE
     Dosage: .5 MG, PRN
     Route: 042
  16. MAGNESIUM SULFATE. [Concomitant]
     Active Substance: MAGNESIUM SULFATE
     Dosage: 2000 MG, PRN
     Route: 042
  17. SODIUM CHLORIDE. [Concomitant]
     Active Substance: SODIUM CHLORIDE
     Dosage: 2 SPRAY, PRN
     Route: 045
  18. VELETRI [Suspect]
     Active Substance: EPOPROSTENOL
     Dosage: 10 NG/KG, PER MIN
     Route: 042
     Dates: start: 20151118
  19. VELETRI [Suspect]
     Active Substance: EPOPROSTENOL
     Dosage: 31.9 NG/KG, PER MIN
     Route: 042
  20. METOPROLOL. [Concomitant]
     Active Substance: METOPROLOL
  21. CALCIUM CHLORIDE. [Concomitant]
     Active Substance: CALCIUM CHLORIDE
     Dosage: 2000 MG, PRN
     Route: 042
  22. ATIVAN [Concomitant]
     Active Substance: LORAZEPAM
     Dosage: 1 MG, PRN
     Route: 048
  23. POTASSIUM CHLORIDE. [Concomitant]
     Active Substance: POTASSIUM CHLORIDE
     Dosage: 40 UNK
     Route: 048
  24. MIRTAZAPINE. [Concomitant]
     Active Substance: MIRTAZAPINE
     Dosage: 15 MG, QPM
     Route: 048
  25. BETAMETHASONE DIPROPIONATE. [Concomitant]
     Active Substance: BETAMETHASONE DIPROPIONATE
     Dosage: UNK, BID
     Route: 061
  26. METHYLPREDNISOLONE. [Concomitant]
     Active Substance: METHYLPREDNISOLONE
     Dosage: 2000 MG
     Route: 042
  27. VELETRI [Suspect]
     Active Substance: EPOPROSTENOL
     Dosage: 32.5 NG/KG, PER MIN
     Route: 042
  28. VELETRI [Suspect]
     Active Substance: EPOPROSTENOL
     Dosage: 30.7 NG/KG, PER MIN
     Route: 042
  29. CELLCEPT [Concomitant]
     Active Substance: MYCOPHENOLATE MOFETIL\MYCOPHENOLATE MOFETIL HYDROCHLORIDE
     Dosage: 1000 MG, BID
     Route: 048
  30. OXYGEN. [Concomitant]
     Active Substance: OXYGEN
     Dosage: 3-4 L/MIN, UNK
  31. LETAIRIS [Concomitant]
     Active Substance: AMBRISENTAN
     Dosage: 10 MG, UNK
     Route: 048
  32. CHOLECALCIFEROL [Concomitant]
     Active Substance: CHOLECALCIFEROL
     Dosage: 1000 IU, QD
     Route: 048
  33. NEXIUM [Concomitant]
     Active Substance: ESOMEPRAZOLE MAGNESIUM
     Dosage: 40 MG, QD
     Route: 048
  34. LEVOTHYROXINE. [Concomitant]
     Active Substance: LEVOTHYROXINE
     Dosage: 50 MCG, QD
     Route: 048
  35. GABAPENTIN. [Concomitant]
     Active Substance: GABAPENTIN
     Dosage: 100 MG, TID
     Route: 048
  36. FAMOTIDINE. [Concomitant]
     Active Substance: FAMOTIDINE
     Dosage: 40 MG BEDTIME
     Route: 048
  37. FERROUS SULFATE. [Concomitant]
     Active Substance: FERROUS SULFATE
     Dosage: 325 MG, TID
     Route: 048
  38. GUAIFENESIN. [Concomitant]
     Active Substance: GUAIFENESIN
     Dosage: 600 MG, Q12HRS
     Route: 048
  39. LOPERAMIDE [Concomitant]
     Active Substance: LOPERAMIDE
     Dosage: 2 MG, PRN
     Route: 048
  40. POTASSIUM CHLORIDE. [Concomitant]
     Active Substance: POTASSIUM CHLORIDE
     Dosage: 10 MEQ, PRN
     Route: 042
  41. SODIUM PHOSPHATE [Concomitant]
     Active Substance: SODIUM PHOSPHATE
     Dosage: 30 MMOL, PRN
     Route: 042
  42. AZITHROMYCIN ANHYDROUS. [Concomitant]
     Active Substance: AZITHROMYCIN ANHYDROUS
     Dosage: 3 X WEEK
  43. SPIRONOLACTONE. [Concomitant]
     Active Substance: SPIRONOLACTONE
  44. MYCOPHENOLATE [Concomitant]
     Active Substance: MYCOPHENOLIC ACID
  45. MELATONIN [Concomitant]
     Active Substance: MELATONIN
     Dosage: 3 MG BEDTIME
     Route: 048
  46. ONDANSETRON [Concomitant]
     Active Substance: ONDANSETRON
     Dosage: 4 MG, TID
  47. CALCIUM GLUCONATE. [Concomitant]
     Active Substance: CALCIUM GLUCONATE
     Dosage: 2000 MG, PRN
     Route: 042
  48. HYDROXYZINE [Concomitant]
     Active Substance: HYDROXYZINE HYDROCHLORIDE
     Dosage: 25 MG, PRN
     Route: 048
  49. MIDODRINE [Concomitant]
     Active Substance: MIDODRINE
     Dosage: 5 MG
     Route: 048
  50. VELETRI [Suspect]
     Active Substance: EPOPROSTENOL
     Indication: PULMONARY HYPERTENSION
     Dosage: 36.1 NG/KG, PER MIN
     Route: 042
     Dates: start: 201511
  51. LETAIRIS [Concomitant]
     Active Substance: AMBRISENTAN
     Dosage: 5 MG, QD
     Route: 048
  52. LEVOTHYROXINE. [Concomitant]
     Active Substance: LEVOTHYROXINE
     Dosage: 75 MCG, QD
     Route: 048
  53. RANITIDINE. [Concomitant]
     Active Substance: RANITIDINE
  54. ALBUTEROL W/IPRATROPIUM [Concomitant]
     Active Substance: ALBUTEROL\IPRATROPIUM
     Dosage: .5MG-2.5MG/3ML
  55. ACETAMINOPHEN. [Concomitant]
     Active Substance: ACETAMINOPHEN
     Dosage: 650 MG, PRN
  56. ALBUTEROL. [Concomitant]
     Active Substance: ALBUTEROL
     Dosage: 3 ML, PRN
     Route: 055
  57. EPINEPHRINE. [Concomitant]
     Active Substance: EPINEPHRINE
     Dosage: 1 MG, PRN
     Route: 042

REACTIONS (36)
  - Transfusion [Unknown]
  - Device alarm issue [Unknown]
  - Hypotension [Not Recovered/Not Resolved]
  - Insomnia [Unknown]
  - Back pain [Unknown]
  - Abdominal discomfort [Recovered/Resolved]
  - Abdominal distension [Unknown]
  - Acute respiratory failure [Not Recovered/Not Resolved]
  - Cardiac failure [Not Recovered/Not Resolved]
  - Systemic scleroderma [Unknown]
  - Pneumonia aspiration [Recovered/Resolved]
  - Dyspnoea [Unknown]
  - Respiratory failure [Unknown]
  - Cardiogenic shock [Not Recovered/Not Resolved]
  - Asthenia [Unknown]
  - Condition aggravated [Not Recovered/Not Resolved]
  - Hospitalisation [Unknown]
  - Interstitial lung disease [Unknown]
  - Endotracheal intubation [Unknown]
  - Dyspnoea exertional [Unknown]
  - Fluid overload [Unknown]
  - Pulmonary arterial hypertension [Not Recovered/Not Resolved]
  - Influenza [Unknown]
  - Septic shock [Unknown]
  - Vomiting [Not Recovered/Not Resolved]
  - Memory impairment [Unknown]
  - Pulmonary fibrosis [Unknown]
  - Headache [Unknown]
  - Death [Fatal]
  - Pneumonia [Unknown]
  - Gastrointestinal haemorrhage [Unknown]
  - Haemoglobin decreased [Unknown]
  - Pruritus generalised [Unknown]
  - Pain in jaw [Unknown]
  - Nausea [Unknown]
  - Complication associated with device [Unknown]

NARRATIVE: CASE EVENT DATE: 20160112
